FAERS Safety Report 10426545 (Version 9)
Quarter: 2021Q1

REPORT INFORMATION
  Report Type: Spontaneous
  Country: US (occurrence: US)
  Receive Date: 20140903
  Receipt Date: 20210127
  Transmission Date: 20210419
  Serious: Yes (Other)
  Sender: FDA-Public Use
  Company Number: US-PFIZER INC-2014240288

PATIENT
  Age: 75 Year
  Sex: Female

DRUGS (5)
  1. ZETIA [Concomitant]
     Active Substance: EZETIMIBE
     Indication: BLOOD CHOLESTEROL ABNORMAL
     Dosage: 10 MG, UNK
  2. DETROL LA [Suspect]
     Active Substance: TOLTERODINE TARTRATE
     Dosage: 4 MG, UNK
     Dates: start: 2012
  3. DETROL LA [Suspect]
     Active Substance: TOLTERODINE TARTRATE
     Dosage: 2 MG, UNK
  4. ACTONEL [Concomitant]
     Active Substance: RISEDRONATE SODIUM
     Indication: BONE DISORDER
     Dosage: 150 MG, MONTHLY
  5. DETROL LA [Suspect]
     Active Substance: TOLTERODINE TARTRATE
     Dosage: 4 MG
     Dates: start: 20130301

REACTIONS (24)
  - Drug ineffective [Unknown]
  - Eructation [Recovered/Resolved]
  - Extrasystoles [Recovered/Resolved]
  - Cardiac discomfort [Unknown]
  - Blood pressure increased [Recovered/Resolved]
  - Hand fracture [Unknown]
  - Cerebrovascular accident [Unknown]
  - Extrasystoles [Unknown]
  - Near death experience [Recovered/Resolved]
  - Haemorrhoids [Unknown]
  - Dry mouth [Recovered/Resolved]
  - Hypotension [Unknown]
  - Nausea [Unknown]
  - Weight decreased [Unknown]
  - Gastrooesophageal reflux disease [Recovered/Resolved]
  - Chest pain [Recovered/Resolved]
  - Musculoskeletal chest pain [Recovered/Resolved]
  - Abdominal pain [Unknown]
  - Flushing [Unknown]
  - Laryngeal pain [Unknown]
  - Flatulence [Recovered/Resolved]
  - Neck pain [Unknown]
  - Hypersensitivity [Unknown]
  - Oropharyngeal pain [Recovered/Resolved]

NARRATIVE: CASE EVENT DATE: 2013
